FAERS Safety Report 5610802-1 (Version None)
Quarter: 2008Q1

REPORT INFORMATION
  Report Type: 
  Country: None (occurrence: None)
  Receive Date: 20080201
  Receipt Date: 20080123
  Transmission Date: 20080703
  Serious: Yes (Hospitalization, Other)
  Sender: FDA-Public Use
  Company Number: PHHO2008TW00556

PATIENT
  Age: 27 Year
  Sex: Male
  Weight: 79 kg

DRUGS (4)
  1. PEGASYS [Suspect]
     Indication: HEPATITIS B
     Dosage: 180 UG,
     Route: 058
     Dates: start: 20070802
  2. PEGASYS [Suspect]
     Dosage: 90 UG,
     Route: 058
  3. PEGASYS [Suspect]
     Dosage: 180 UG,
     Route: 058
     Dates: start: 20080116
  4. PEGASYS [Suspect]
     Indication: HEPATITIS B
     Dosage: 600 MG,
     Route: 048
     Dates: start: 20070802

REACTIONS (2)
  - HYPOAESTHESIA [None]
  - RADICULOPATHY [None]
